FAERS Safety Report 15352983 (Version 1)
Quarter: 2018Q3

REPORT INFORMATION
  Report Type: Spontaneous
  Country: FR (occurrence: FR)
  Receive Date: 20180905
  Receipt Date: 20180905
  Transmission Date: 20181010
  Serious: Yes (Hospitalization)
  Sender: FDA-Public Use
  Company Number: FR-CELGENEUS-FRA-20180810291

PATIENT
  Age: 73 Year
  Sex: Male
  Weight: 82 kg

DRUGS (4)
  1. CEFOXITINE PANPHARMA [Concomitant]
     Active Substance: CEFOXITIN SODIUM
     Indication: OSTEITIS
     Dosage: 2G ON MONDAY, WEDNESDAY AND FRIDAY
     Route: 041
     Dates: start: 20180720
  2. PREGABALINE [Concomitant]
     Active Substance: PREGABALIN
     Indication: ANALGESIC INTERVENTION SUPPORTIVE THERAPY
     Route: 048
     Dates: start: 20180808
  3. REVLIMID [Suspect]
     Active Substance: LENALIDOMIDE
     Indication: AMYLOIDOSIS
     Route: 048
     Dates: start: 2016
  4. LINEZOLIDE ARROW [Concomitant]
     Active Substance: LINEZOLID
     Indication: OSTEITIS
     Route: 048
     Dates: start: 20180720

REACTIONS (1)
  - Jaundice cholestatic [Not Recovered/Not Resolved]

NARRATIVE: CASE EVENT DATE: 20180725
